FAERS Safety Report 9443788 (Version 1)
Quarter: 2013Q3

REPORT INFORMATION
  Report Type: Report from Study
  Country: CN (occurrence: CN)
  Receive Date: 20130806
  Receipt Date: 20130806
  Transmission Date: 20140515
  Serious: Yes (Death)
  Sender: FDA-Public Use
  Company Number: CN-ROCHE-1252631

PATIENT
  Age: 75 Year
  Sex: Male
  Weight: 72 kg

DRUGS (1)
  1. AVASTIN [Suspect]
     Indication: COLON CANCER
     Route: 042
     Dates: start: 20120731

REACTIONS (5)
  - Disease progression [Fatal]
  - Cardio-respiratory arrest [Fatal]
  - Haematochezia [Unknown]
  - Abdominal pain upper [Unknown]
  - Asthenia [Unknown]
